FAERS Safety Report 20440328 (Version 1)
Quarter: 2022Q1

REPORT INFORMATION
  Report Type: Spontaneous
  Country: US (occurrence: None)
  Receive Date: 20220206
  Receipt Date: 20220206
  Transmission Date: 20220423
  Serious: Yes (Other)
  Sender: FDA-Public Use
  Company Number: None

PATIENT
  Age: 58 Year
  Sex: Male
  Weight: 69.75 kg

DRUGS (1)
  1. DUPIXENT [Suspect]
     Active Substance: DUPILUMAB
     Indication: Dermatitis atopic
     Dosage: OTHER QUANTITY : 2 INJECTION(S);?OTHER FREQUENCY : BI-WEEKLY;?
     Route: 058
     Dates: start: 20190117

REACTIONS (3)
  - Dry eye [None]
  - Vision blurred [None]
  - Chorioretinopathy [None]

NARRATIVE: CASE EVENT DATE: 20200428
